FAERS Safety Report 17170728 (Version 1)
Quarter: 2019Q4

REPORT INFORMATION
  Report Type: Spontaneous
  Country: IT (occurrence: IT)
  Receive Date: 20191218
  Receipt Date: 20191218
  Transmission Date: 20200122
  Serious: Yes (Other)
  Sender: FDA-Public Use
  Company Number: IT-MYLANLABS-2019M1123603

PATIENT
  Age: 69 Year
  Sex: Male

DRUGS (5)
  1. CIPRALEX [Concomitant]
     Active Substance: ESCITALOPRAM OXALATE
  2. DOXAZOSIN [Concomitant]
     Active Substance: DOXAZOSIN MESYLATE
     Dosage: UNK
  3. LOBIVON [Concomitant]
     Active Substance: NEBIVOLOL HYDROCHLORIDE
     Route: 048
  4. MICARDIS [Concomitant]
     Active Substance: TELMISARTAN
     Dosage: UNK
  5. DUTASTERIDE. [Suspect]
     Active Substance: DUTASTERIDE
     Indication: BENIGN PROSTATIC HYPERPLASIA
     Dosage: 0.5 MILLIGRAM, QD
     Route: 048
     Dates: start: 20190606, end: 20191106

REACTIONS (3)
  - Erectile dysfunction [Unknown]
  - Dyspepsia [Unknown]
  - Nocturia [Unknown]

NARRATIVE: CASE EVENT DATE: 20190617
